FAERS Safety Report 9982030 (Version 2)
Quarter: 2014Q1

REPORT INFORMATION
  Report Type: Report from Study
  Country: US (occurrence: US)
  Receive Date: 20140307
  Receipt Date: 20140307
  Transmission Date: 20141002
  Serious: No
  Sender: FDA-Public Use
  Company Number: US-ABBVIE-13P-163-1172381-00

PATIENT
  Age: 41 Year
  Sex: Female
  Weight: 63.56 kg

DRUGS (7)
  1. HUMIRA [Suspect]
     Indication: COLITIS ULCERATIVE
     Dosage: ONE DOSE
     Dates: start: 20131121, end: 20131121
  2. LIALDA [Concomitant]
     Indication: COLITIS ULCERATIVE
  3. MULTIVITAMIN [Concomitant]
     Indication: VITAMIN SUPPLEMENTATION
  4. CALCIUM [Concomitant]
     Indication: MINERAL SUPPLEMENTATION
  5. ZYRTEC [Concomitant]
     Indication: SEASONAL ALLERGY
  6. FLONASE [Concomitant]
     Indication: SEASONAL ALLERGY
  7. TRAZODONE [Concomitant]
     Indication: INSOMNIA

REACTIONS (3)
  - Oropharyngeal discomfort [Recovered/Resolved]
  - Paraesthesia [Recovered/Resolved]
  - Nausea [Recovered/Resolved]
